FAERS Safety Report 22309014 (Version 1)
Quarter: 2023Q2

REPORT INFORMATION
  Report Type: Spontaneous
  Country: US (occurrence: None)
  Receive Date: 20230511
  Receipt Date: 20230511
  Transmission Date: 20230722
  Serious: No
  Sender: FDA-Public Use
  Company Number: US-ROCHE-3302132

PATIENT

DRUGS (1)
  1. OCREVUS [Suspect]
     Active Substance: OCRELIZUMAB
     Indication: Product used for unknown indication
     Route: 065

REACTIONS (6)
  - Peroneal nerve palsy [Unknown]
  - Confusional state [Unknown]
  - Dizziness [Unknown]
  - Tremor [Unknown]
  - Heart rate increased [Unknown]
  - Hypotension [Unknown]
